FAERS Safety Report 20085832 (Version 1)
Quarter: 2021Q4

REPORT INFORMATION
  Report Type: Spontaneous
  Country: CN (occurrence: CN)
  Receive Date: 20211118
  Receipt Date: 20211118
  Transmission Date: 20220303
  Serious: Yes (Other)
  Sender: FDA-Public Use
  Company Number: CN-PFIZER INC-202101528135

PATIENT
  Age: 71 Year
  Sex: Female

DRUGS (1)
  1. PIPERACILLIN SODIUM\TAZOBACTAM SODIUM [Suspect]
     Active Substance: PIPERACILLIN SODIUM\TAZOBACTAM SODIUM
     Indication: Therapeutic procedure
     Dosage: 4.5 G, 1X/DAY
     Route: 041
     Dates: start: 20211025, end: 20211025

REACTIONS (3)
  - Tachypnoea [Recovered/Resolved]
  - Tremor [Recovered/Resolved]
  - Off label use [Unknown]

NARRATIVE: CASE EVENT DATE: 20211025
